FAERS Safety Report 7677557-0 (Version None)
Quarter: 2011Q3

REPORT INFORMATION
  Report Type: 
  Country: None (occurrence: None)
  Receive Date: 20110811
  Receipt Date: 20110802
  Transmission Date: 20111222
  Serious: Yes (Hospitalization)
  Sender: FDA-Public Use
  Company Number: DE-ASTRAZENECA-2011SE39639

PATIENT
  Age: 68 Year
  Sex: Male

DRUGS (18)
  1. LEVOTHYROXINE SODIUM [Concomitant]
     Route: 048
  2. VENLAFAXINE [Interacting]
     Route: 048
     Dates: start: 20100901
  3. VENLAFAXINE [Interacting]
     Route: 048
     Dates: start: 20100823, end: 20100825
  4. TRIMIPRAMINE MALEATE [Interacting]
     Route: 048
     Dates: start: 20100902, end: 20100903
  5. VENLAFAXINE [Interacting]
     Route: 048
     Dates: start: 20100826, end: 20100831
  6. RISPERDAL [Concomitant]
     Route: 048
     Dates: start: 20100818, end: 20100818
  7. SIMVASTATIN [Concomitant]
     Route: 048
  8. AMLODIPINE [Interacting]
     Route: 048
     Dates: end: 20100824
  9. AMLODIPINE [Interacting]
     Route: 048
     Dates: start: 20100825
  10. RISPERDAL [Concomitant]
     Route: 048
     Dates: start: 20100819
  11. PANTOPRAZOLE [Concomitant]
     Route: 048
  12. METOPROLOL SUCCINATE [Suspect]
     Route: 048
  13. TRIMIPRAMINE MALEATE [Interacting]
     Route: 048
     Dates: start: 20090101, end: 20100831
  14. CELEBREX [Interacting]
     Route: 048
     Dates: start: 20100903
  15. LITHIUM CARBONATE [Interacting]
     Route: 048
     Dates: start: 20100830, end: 20100901
  16. LITHIUM CARBONATE [Interacting]
     Route: 048
     Dates: start: 20100902, end: 20100907
  17. TRIMIPRAMINE MALEATE [Interacting]
     Route: 048
     Dates: start: 20100901, end: 20100901
  18. CELEBREX [Interacting]
     Route: 048
     Dates: start: 20100902, end: 20100902

REACTIONS (2)
  - SEROTONIN SYNDROME [None]
  - DRUG INTERACTION [None]
